FAERS Safety Report 8772493 (Version 1)
Quarter: 2012Q4

REPORT INFORMATION
  Report Type: 
  Country: CN (occurrence: CN)
  Receive Date: 20120905
  Receipt Date: 20120905
  Transmission Date: 20130627
  Serious: Yes (Hospitalization, Other)
  Sender: FDA-Public Use
  Company Number: CN-ASTRAZENECA-2012SE69543

PATIENT
  Sex: Female
  Weight: 55.8 kg

DRUGS (1)
  1. NAROPIN [Suspect]
     Indication: SPINAL ANAESTHESIA
     Route: 008
     Dates: start: 20110501, end: 20110501

REACTIONS (1)
  - Hyporeflexia [Recovering/Resolving]
